FAERS Safety Report 7584963-1 (Version None)
Quarter: 2011Q2

REPORT INFORMATION
  Report Type: 
  Country: None (occurrence: None)
  Receive Date: 20110630
  Receipt Date: 20110622
  Transmission Date: 20111010
  Serious: Yes (Life-Threatening, Hospitalization, Other)
  Sender: FDA-Public Use
  Company Number: GB-ABBOTT-11P-167-0725791-00

PATIENT
  Age: 73 Year
  Sex: Male

DRUGS (2)
  1. LEUPROLIDE ACETATE [Suspect]
     Indication: PROSTATE CANCER
     Dosage: DAILY DOSE: 11.25MG
     Route: 050
     Dates: start: 20110506
  2. CYPROTERONE [Concomitant]
     Indication: PROSTATE CANCER

REACTIONS (1)
  - ANAPHYLACTIC REACTION [None]
